FAERS Safety Report 9883156 (Version 8)
Quarter: 2015Q4

REPORT INFORMATION
  Report Type: Report from Study
  Country: CA (occurrence: CA)
  Receive Date: 20140208
  Receipt Date: 20151214
  Transmission Date: 20160305
  Serious: Yes (Hospitalization, Other)
  Sender: FDA-Public Use
  Company Number: CA-ROCHE-1239022

PATIENT
  Age: 74 Year
  Sex: Male
  Weight: 80 kg

DRUGS (24)
  1. OXYGEN. [Suspect]
     Active Substance: OXYGEN
     Indication: PRODUCT USED FOR UNKNOWN INDICATION
     Route: 045
  2. DIAMICRON MR [Concomitant]
     Active Substance: GLICLAZIDE
  3. RISEDRONATE [Concomitant]
     Active Substance: RISEDRONATE SODIUM
  4. RITUXAN [Suspect]
     Active Substance: RITUXIMAB
     Indication: RHEUMATOID ARTHRITIS
     Route: 042
     Dates: start: 20130603, end: 20131206
  5. BETAHISTINE [Concomitant]
     Active Substance: BETAHISTINE
  6. PRAVASTATIN [Concomitant]
     Active Substance: PRAVASTATIN\PRAVASTATIN SODIUM
  7. GLICLAZIDE [Concomitant]
     Active Substance: GLICLAZIDE
  8. AMLODIPINE [Concomitant]
     Active Substance: AMLODIPINE BESYLATE
  9. CALCITONIN [Concomitant]
     Active Substance: CALCITONIN
     Route: 065
  10. ACTEMRA [Suspect]
     Active Substance: TOCILIZUMAB
     Indication: RHEUMATOID ARTHRITIS
     Route: 042
     Dates: start: 20140530
  11. METHOTREXATE [Suspect]
     Active Substance: METHOTREXATE
     Indication: PRODUCT USED FOR UNKNOWN INDICATION
     Dosage: 6 TABLET ONCE A WEEK
     Route: 065
     Dates: end: 2014
  12. METHYLPREDNISOLONE. [Concomitant]
     Active Substance: METHYLPREDNISOLONE
     Indication: PREMEDICATION
     Route: 042
     Dates: start: 20130617, end: 20131206
  13. ULTRAM [Concomitant]
     Active Substance: TRAMADOL HYDROCHLORIDE
  14. LANTUS [Concomitant]
     Active Substance: INSULIN GLARGINE
  15. DIPHENHYDRAMINE HCL [Concomitant]
     Active Substance: DIPHENHYDRAMINE HYDROCHLORIDE
     Indication: PREMEDICATION
     Route: 048
     Dates: start: 20130617, end: 20131206
  16. OLESTYR [Concomitant]
  17. ACETAMINOPHEN. [Concomitant]
     Active Substance: ACETAMINOPHEN
     Indication: PREMEDICATION
     Route: 048
     Dates: start: 20130617, end: 20131206
  18. RAMIPRIL. [Concomitant]
     Active Substance: RAMIPRIL
  19. ACTEMRA [Suspect]
     Active Substance: TOCILIZUMAB
     Route: 042
     Dates: start: 20140909
  20. RABEPRAZOLE [Concomitant]
     Active Substance: RABEPRAZOLE
  21. DOMPERIDONE [Concomitant]
     Active Substance: DOMPERIDONE
  22. NITRO-DUR [Concomitant]
     Active Substance: NITROGLYCERIN
  23. INFUFER [Concomitant]
  24. FERROUS SULFATE [Concomitant]
     Active Substance: FERROUS SULFATE\FERROUS SULFATE, DRIED

REACTIONS (32)
  - Oxygen saturation decreased [Unknown]
  - Respiratory rate increased [Unknown]
  - Lung infection [Unknown]
  - Arthralgia [Recovered/Resolved]
  - Pneumonia [Unknown]
  - Confusional state [Not Recovered/Not Resolved]
  - Blood pressure abnormal [Unknown]
  - Hallucination, auditory [Unknown]
  - Brain neoplasm [Unknown]
  - Confusional state [Not Recovered/Not Resolved]
  - Infection [Unknown]
  - Oxygen saturation decreased [Unknown]
  - Headache [Unknown]
  - Anxiety [Unknown]
  - Lower respiratory tract infection [Unknown]
  - Head injury [Unknown]
  - Pneumonia [Recovering/Resolving]
  - Weight increased [Not Recovered/Not Resolved]
  - Epistaxis [Unknown]
  - Blood pressure increased [Unknown]
  - Arthralgia [Unknown]
  - Oxygen saturation decreased [Unknown]
  - Prostate cancer [Unknown]
  - Wound [Unknown]
  - Respiratory rate increased [Unknown]
  - Fall [Unknown]
  - Dizziness [Unknown]
  - Musculoskeletal stiffness [Unknown]
  - Blood pressure increased [Unknown]
  - Infusion related reaction [Unknown]
  - Neutropenia [Unknown]
  - Blood pressure diastolic decreased [Unknown]

NARRATIVE: CASE EVENT DATE: 20130617
